FAERS Safety Report 7654438-X (Version None)
Quarter: 2011Q3

REPORT INFORMATION
  Report Type: 
  Country: None (occurrence: None)
  Receive Date: 20110803
  Receipt Date: 20110712
  Transmission Date: 20111222
  Serious: Yes (Other)
  Sender: FDA-Public Use
  Company Number: US-BAYER-2011-060953

PATIENT
  Age: 65 Year
  Sex: Male

DRUGS (3)
  1. PLAVIX [Interacting]
     Indication: STENT PLACEMENT
  2. ASPIRIN [Suspect]
  3. PLAVIX [Interacting]
     Indication: MYOCARDIAL INFARCTION
     Dosage: 75 MG, QD
     Route: 048
     Dates: start: 20090101

REACTIONS (2)
  - EPISTAXIS [None]
  - CONTUSION [None]
